FAERS Safety Report 17072107 (Version 1)
Quarter: 2019Q4

REPORT INFORMATION
  Report Type: Spontaneous
  Country: US (occurrence: US)
  Receive Date: 20191125
  Receipt Date: 20191125
  Transmission Date: 20200122
  Serious: No
  Sender: FDA-Public Use
  Company Number: US-BIOMARINAP-US-2019-126768

PATIENT

DRUGS (1)
  1. PALYNZIQ [Suspect]
     Active Substance: PEGVALIASE-PQPZ
     Indication: PHENYLKETONURIA
     Dosage: 2. MILLIGRAM, QW
     Route: 058
     Dates: start: 20191022

REACTIONS (2)
  - Skin reaction [Unknown]
  - Rash pruritic [Unknown]

NARRATIVE: CASE EVENT DATE: 20191106
